FAERS Safety Report 10070596 (Version 2)
Quarter: 2014Q2

REPORT INFORMATION
  Report Type: Spontaneous
  Country: FR (occurrence: FR)
  Receive Date: 20140410
  Receipt Date: 20140410
  Transmission Date: 20141212
  Serious: Yes (Other)
  Sender: FDA-Public Use
  Company Number: FR-TEVA-446697ISR

PATIENT
  Age: 37 Year
  Sex: Male

DRUGS (1)
  1. COPAXONE [Suspect]
     Indication: RELAPSING-REMITTING MULTIPLE SCLEROSIS
     Route: 058
     Dates: start: 201309, end: 201310

REACTIONS (4)
  - Weight decreased [Recovered/Resolved]
  - Affective disorder [Recovered/Resolved]
  - Apathy [Recovered/Resolved]
  - Asthenia [Unknown]
